FAERS Safety Report 10240945 (Version 6)
Quarter: 2015Q1

REPORT INFORMATION
  Report Type: Spontaneous
  Country: FR (occurrence: FR)
  Receive Date: 20140617
  Receipt Date: 20150213
  Transmission Date: 20150720
  Serious: Yes (Hospitalization, Other)
  Sender: FDA-Public Use
  Company Number: FR-ROCHE-1419469

PATIENT
  Age: 50 Year
  Sex: Female
  Weight: 65 kg

DRUGS (2)
  1. ZELBORAF [Suspect]
     Active Substance: VEMURAFENIB
     Indication: METASTATIC MALIGNANT MELANOMA
     Route: 048
     Dates: start: 20140516, end: 201412
  2. ZELBORAF [Suspect]
     Active Substance: VEMURAFENIB
     Route: 048

REACTIONS (11)
  - Hyperthermia malignant [Unknown]
  - Asthenia [Unknown]
  - Relapsing fever [Unknown]
  - Squamous cell carcinoma [Recovered/Resolved]
  - Inflammation [Unknown]
  - Erythema [Recovered/Resolved]
  - Urinary tract infection [Not Recovered/Not Resolved]
  - Leukocytosis [Unknown]
  - Hyponatraemia [Unknown]
  - Dyspnoea [Unknown]
  - Alveolitis [Unknown]

NARRATIVE: CASE EVENT DATE: 201406
